FAERS Safety Report 12278168 (Version 2)
Quarter: 2016Q3

REPORT INFORMATION
  Report Type: Report from Study
  Country: US (occurrence: US)
  Receive Date: 20160418
  Receipt Date: 20160808
  Transmission Date: 20161109
  Serious: Yes (Hospitalization, Other)
  Sender: FDA-Public Use
  Company Number: US-BAYER-2016-071717

PATIENT
  Age: 84 Year
  Sex: Male

DRUGS (4)
  1. XOFIGO [Suspect]
     Active Substance: RADIUM RA-223 DICHLORIDE
     Indication: HORMONE-REFRACTORY PROSTATE CANCER
     Dosage: ONCE EVERY 28 DAYS
     Route: 042
     Dates: start: 20160613
  2. XOFIGO [Suspect]
     Active Substance: RADIUM RA-223 DICHLORIDE
     Indication: HORMONE-REFRACTORY PROSTATE CANCER
     Dosage: ONCE EVERY 28 DAYS
     Dates: start: 20160201
  3. XOFIGO [Suspect]
     Active Substance: RADIUM RA-223 DICHLORIDE
     Indication: METASTASES TO BONE
     Dosage: 98.20 ?CI, ONCE (EVERY 28 DAYS)
     Route: 042
     Dates: start: 20160307
  4. XOFIGO [Suspect]
     Active Substance: RADIUM RA-223 DICHLORIDE
     Indication: HORMONE-REFRACTORY PROSTATE CANCER
     Dosage: ONCE EVERY 28 DAYS
     Route: 042
     Dates: start: 20160504

REACTIONS (2)
  - General physical health deterioration [None]
  - Cardiac disorder [Unknown]

NARRATIVE: CASE EVENT DATE: 20160803
